FAERS Safety Report 5247428-8 (Version None)
Quarter: 2007Q1

REPORT INFORMATION
  Report Type: 
  Country: None (occurrence: None)
  Receive Date: 20070223
  Receipt Date: 20070223
  Transmission Date: 20070707
  Serious: Yes (Other)
  Sender: FDA-Public Use
  Company Number: None

PATIENT
  Sex: Male

DRUGS (2)
  1. TAMOXIFEN CITRATE [Suspect]
     Dosage: PO
     Route: 048
  2. ANABOLIC INJECTED STEROID [Suspect]
     Dosage: IM
     Route: 030
     Dates: end: 20060622

REACTIONS (8)
  - ACNE [None]
  - CULTURE POSITIVE [None]
  - HEADACHE [None]
  - PYREXIA [None]
  - RASH PAPULAR [None]
  - SCAR [None]
  - SKIN DISORDER [None]
  - VARICELLA [None]
